FAERS Safety Report 4263831-7 (Version None)
Quarter: 2004Q1

REPORT INFORMATION
  Report Type: 
  Country: None (occurrence: None)
  Receive Date: 20040105
  Receipt Date: 20040105
  Transmission Date: 20041129
  Serious: Yes (Other)
  Sender: FDA-Public Use
  Company Number: None

PATIENT
  Age: 57 Year
  Sex: Female

DRUGS (2)
  1. VANCOMYCIN [Suspect]
     Indication: PNEUMONIA
     Dosage: 1400 MG IV QD
     Route: 042
     Dates: start: 20031217
  2. VANCOMYCIN [Suspect]
     Indication: STAPHYLOCOCCAL INFECTION
     Dosage: 1400 MG IV QD
     Route: 042
     Dates: start: 20031217

REACTIONS (1)
  - URTICARIA [None]
